FAERS Safety Report 23630864 (Version 2)
Quarter: 2024Q2

REPORT INFORMATION
  Report Type: Spontaneous
  Country: JP (occurrence: JP)
  Receive Date: 20240314
  Receipt Date: 20240619
  Transmission Date: 20240715
  Serious: Yes (Death, Hospitalization, Other)
  Sender: FDA-Public Use
  Company Number: JP-DAIICHI SANKYO, INC.-DSJ-2023-123472

PATIENT
  Age: 72 Year
  Sex: Female
  Weight: 81 kg

DRUGS (37)
  1. ENHERTU [Suspect]
     Active Substance: FAM-TRASTUZUMAB DERUXTECAN-NXKI
     Indication: HER2 negative breast cancer
     Dosage: 360 MG, ONCE EVERY 3 WK
     Route: 041
     Dates: start: 20230522, end: 20230522
  2. PALONOSETRON HYDROCHLORIDE [Concomitant]
     Active Substance: PALONOSETRON HYDROCHLORIDE
     Indication: Product used for unknown indication
     Dosage: 0.75, QD
     Route: 041
     Dates: start: 20230522, end: 20230522
  3. DEXAMETHASONE SODIUM PHOSPHATE [Concomitant]
     Active Substance: DEXAMETHASONE PHOSPHATE\DEXAMETHASONE SODIUM PHOSPHATE
     Indication: Product used for unknown indication
     Dosage: 9.9, QD
     Route: 041
     Dates: start: 20230522, end: 20230522
  4. MAGNESIUM OXIDE [Concomitant]
     Active Substance: MAGNESIUM OXIDE
     Indication: Product used for unknown indication
     Dosage: 660 MG, TID, MORNING, NOON AND EVENING, AFTER MEAL (ADJUST AS NEEDED BASED ON STOOL CONDITION)
     Route: 048
     Dates: start: 20201223, end: 20210105
  5. MAGNESIUM OXIDE [Concomitant]
     Active Substance: MAGNESIUM OXIDE
     Dosage: 660 MG, TID, MORNING, NOON AND EVENING, AFTER MEAL (ADJUST AS NEEDED BASED ON STOOL CONDITION)
     Route: 048
     Dates: start: 20210329, end: 20210404
  6. MAGNESIUM OXIDE [Concomitant]
     Active Substance: MAGNESIUM OXIDE
     Dosage: 330 MG, BID, MORNING AND EVENING, AFTER MEAL (ADJUST AS NEEDED BASED ON STOOL CONDITION)
     Route: 048
     Dates: start: 20210426, end: 20210620
  7. MAGNESIUM OXIDE [Concomitant]
     Active Substance: MAGNESIUM OXIDE
     Dosage: 330 MG, BID, MORNING AND EVENING, AFTER MEAL (ADJUST AS NEEDED BASED ON STOOL CONDITION)
     Route: 048
     Dates: start: 20210705, end: 20210801
  8. MAGNESIUM OXIDE [Concomitant]
     Active Substance: MAGNESIUM OXIDE
     Dosage: 330 MG, QD, BETWEEN BREAKFAST (SELF-ADJUSTABLE)
     Route: 048
     Dates: start: 20210806, end: 20210807
  9. MAGNESIUM OXIDE [Concomitant]
     Active Substance: MAGNESIUM OXIDE
     Dosage: 330 MG, BID, MORNING AND EVENING, AFTER MEAL (ADJUST AS NEEDED BASED ON STOOL CONDITION)
     Route: 048
     Dates: start: 20210913, end: 20211010
  10. MAGNESIUM OXIDE [Concomitant]
     Active Substance: MAGNESIUM OXIDE
     Dosage: 660 MG, QD, AFTER DINNER (ADJUST AS NEEDED BASED ON STOOL CONDITION)
     Route: 048
     Dates: start: 20211011, end: 20220531
  11. MAGNESIUM OXIDE [Concomitant]
     Active Substance: MAGNESIUM OXIDE
     Dosage: 660 MG, QD, AFTER DINNER (ADJUST AS NEEDED BASED ON STOOL CONDITION)
     Route: 048
     Dates: start: 20220613, end: 20220712
  12. MAGNESIUM OXIDE [Concomitant]
     Active Substance: MAGNESIUM OXIDE
     Dosage: 660 MG, QD, AFTER DINNER (ADJUST AS NEEDED BASED ON STOOL CONDITION)
     Route: 048
     Dates: start: 20220725, end: 20220823
  13. MAGNESIUM OXIDE [Concomitant]
     Active Substance: MAGNESIUM OXIDE
     Dosage: 660 MG, QD, AFTER DINNER (ADJUST AS NEEDED BASED ON STOOL CONDITION)
     Route: 048
     Dates: start: 20220915, end: 20221014
  14. MAGNESIUM OXIDE [Concomitant]
     Active Substance: MAGNESIUM OXIDE
     Dosage: 660 MG, QD, BEFORE SLEEP (SELF-ADJUSTABLE)
     Route: 048
     Dates: start: 20221101, end: 20221103
  15. MAGNESIUM OXIDE [Concomitant]
     Active Substance: MAGNESIUM OXIDE
     Dosage: 660 MG, QD, BEFORE SLEEP (SELF-ADJUSTABLE)
     Route: 048
     Dates: start: 20221116, end: 20221117
  16. MAGNESIUM OXIDE [Concomitant]
     Active Substance: MAGNESIUM OXIDE
     Dosage: 660 MG, QD, AFTER DINNER (ADJUST AS NEEDED BASED ON STOOL CONDITION)
     Route: 048
     Dates: start: 20221124, end: 20230416
  17. MAGNESIUM OXIDE [Concomitant]
     Active Substance: MAGNESIUM OXIDE
     Dosage: 660 MG, QD, AFTER DINNER (ADJUST AS NEEDED BASED ON STOOL CONDITION)
     Route: 048
     Dates: start: 20230419, end: 20230420
  18. MAGNESIUM OXIDE [Concomitant]
     Active Substance: MAGNESIUM OXIDE
     Dosage: 660 MG X 1 TIME AFTER DINNER (ADJUST AS NEEDED BASED ON STOOL CONDITION), 330 MG X 1 TIME BEFORE SLE
     Route: 048
     Dates: start: 20230421, end: 20230424
  19. MAGNESIUM OXIDE [Concomitant]
     Active Substance: MAGNESIUM OXIDE
     Dosage: 660 MG, QD, AFTER DINNER (ADJUST AS NEEDED BASED ON STOOL CONDITION)
     Route: 048
     Dates: start: 20230425, end: 20230429
  20. MAGNESIUM OXIDE [Concomitant]
     Active Substance: MAGNESIUM OXIDE
     Dosage: 660 MG, QD, AFTER DINNER
     Route: 048
     Dates: start: 20230515, end: 20230607
  21. MAGNESIUM OXIDE [Concomitant]
     Active Substance: MAGNESIUM OXIDE
     Dosage: 990 MG (660 MG AFTER BREAKFAST, 330 MG BEFORE SLEEP)
     Route: 048
     Dates: start: 20230525, end: 20230525
  22. MAGNESIUM OXIDE [Concomitant]
     Active Substance: MAGNESIUM OXIDE
     Dosage: 990 MG (660 MG AFTER BREAKFAST, 330 MG BEFORE SLEEP)
     Route: 048
     Dates: start: 20230526, end: 20230526
  23. MAGNESIUM OXIDE [Concomitant]
     Active Substance: MAGNESIUM OXIDE
     Dosage: 660 MG (660 MG AFTER BREAKFAST)
     Route: 048
     Dates: start: 20230527, end: 20230527
  24. MAGNESIUM OXIDE [Concomitant]
     Active Substance: MAGNESIUM OXIDE
     Dosage: 660 MG (660 MG AFTER BREAKFAST)
     Route: 048
     Dates: start: 20230602, end: 20230602
  25. MAGNESIUM OXIDE [Concomitant]
     Active Substance: MAGNESIUM OXIDE
     Dosage: 660 MG (660 MG AFTER BREAKFAST)
     Route: 048
     Dates: start: 20230604, end: 20230604
  26. BELSOMRA [Concomitant]
     Active Substance: SUVOREXANT
     Indication: Product used for unknown indication
     Dosage: 15 MG, QD, BEFORE BEDTIME
     Route: 048
  27. SOLIFENACIN SUCCINATE OD [Concomitant]
     Indication: Product used for unknown indication
     Dosage: 5 MG, BID, MORNING AND EVENING, AFTER MEAL
     Route: 048
     Dates: start: 20210805, end: 20210807
  28. SOLIFENACIN SUCCINATE OD [Concomitant]
     Dosage: 5 MG, BID, MORNING AND EVENING, AFTER MEAL
     Route: 048
     Dates: start: 20221101, end: 20221104
  29. SOLIFENACIN SUCCINATE OD [Concomitant]
     Dosage: 5 MG, BID, MORNING AND EVENING, AFTER MEAL
     Route: 048
     Dates: start: 20221115, end: 20221118
  30. SOLIFENACIN SUCCINATE OD [Concomitant]
     Dosage: 5 MG, BID, MORNING AND EVENING, AFTER MEAL
     Route: 048
     Dates: start: 20230419, end: 20230430
  31. SOLIFENACIN SUCCINATE OD [Concomitant]
     Dosage: 5 MG, BID, MORNING AND EVENING, AFTER MEAL
     Route: 048
     Dates: start: 20230524, end: 20230604
  32. INSULIN GLARGINE [Concomitant]
     Active Substance: INSULIN GLARGINE
     Indication: Product used for unknown indication
     Dosage: UNK
     Route: 058
  33. NOVAMINE [Concomitant]
     Active Substance: ALANINE\ARGININE\ASPARTIC ACID\GLUTAMIC ACID\GLYCINE\HISTIDINE\ISOLEUCINE\LEUCINE\LYSINE ACETATE\MET
     Indication: Product used for unknown indication
     Dosage: UNK
     Route: 048
  34. METFORMIN HYDROCHLORIDE [Concomitant]
     Active Substance: METFORMIN HYDROCHLORIDE
     Indication: Product used for unknown indication
     Dosage: 500 MG, BID, MORNINNG AND EVENING, AFTER MEAL
     Route: 048
     Dates: start: 20230419
  35. ROSUVASTATIN CALCIUM [Concomitant]
     Active Substance: ROSUVASTATIN CALCIUM
     Indication: Product used for unknown indication
     Dosage: 2.5 MG, QD, MORNING, AFTER MEAL
     Route: 065
     Dates: start: 20230419
  36. IRBESARTAN [Concomitant]
     Active Substance: IRBESARTAN
     Indication: Product used for unknown indication
     Dosage: 100 MG, QD, MORNING, AFTER MEAL
     Route: 048
     Dates: start: 20230419
  37. JARDIANCE [Concomitant]
     Active Substance: EMPAGLIFLOZIN
     Indication: Product used for unknown indication
     Dosage: UNK
     Route: 048

REACTIONS (4)
  - Diarrhoea [Recovering/Resolving]
  - Neutropenia [Recovered/Resolved]
  - Disease progression [Fatal]
  - Nausea [Recovered/Resolved]

NARRATIVE: CASE EVENT DATE: 20230527
